FAERS Safety Report 13492918 (Version 1)
Quarter: 2017Q2

REPORT INFORMATION
  Report Type: Spontaneous
  Country: US (occurrence: US)
  Receive Date: 20170427
  Receipt Date: 20170427
  Transmission Date: 20170830
  Serious: No
  Sender: FDA-Public Use
  Company Number: US-ROCHE-1080001

PATIENT
  Sex: Male

DRUGS (1)
  1. ERIVEDGE [Suspect]
     Active Substance: VISMODEGIB
     Indication: BASAL CELL CARCINOMA
     Dosage: DOSE FORM: PILL
     Route: 048
     Dates: start: 201205, end: 201206

REACTIONS (4)
  - Hyperhidrosis [Unknown]
  - Movement disorder [Unknown]
  - Fatigue [Unknown]
  - Asthenia [Unknown]
